FAERS Safety Report 14079683 (Version 2)
Quarter: 2017Q4

REPORT INFORMATION
  Report Type: Report from Study
  Country: US (occurrence: US)
  Receive Date: 20171012
  Receipt Date: 20171030
  Transmission Date: 20180321
  Serious: No
  Sender: FDA-Public Use
  Company Number: US-ELI_LILLY_AND_COMPANY-US201710004310

PATIENT
  Age: 62 Year
  Sex: Female

DRUGS (1)
  1. TERIPARATIDE [Suspect]
     Active Substance: TERIPARATIDE
     Indication: OSTEOPOROSIS
     Dosage: 20 UG, UNKNOWN
     Route: 058
     Dates: start: 20170905, end: 20171020

REACTIONS (8)
  - Muscle spasms [Recovered/Resolved]
  - Muscle spasms [Unknown]
  - Ear pain [Not Recovered/Not Resolved]
  - Pain [Unknown]
  - Muscle tightness [Unknown]
  - Product storage error [Unknown]
  - Dehydration [Unknown]
  - Pain in jaw [Not Recovered/Not Resolved]

NARRATIVE: CASE EVENT DATE: 2017
